FAERS Safety Report 5954160-1 (Version None)
Quarter: 2008Q4

REPORT INFORMATION
  Report Type: 
  Country: None (occurrence: None)
  Receive Date: 20081113
  Receipt Date: 20081113
  Transmission Date: 20090506
  Serious: No
  Sender: FDA-Public Use
  Company Number: None

PATIENT
  Sex: Female

DRUGS (1)
  1. DOXAZOSIN MESYLATE [Suspect]
     Indication: HYPERTENSION
     Dosage: 8MG DAILY PO
     Route: 048
     Dates: start: 20020101

REACTIONS (2)
  - PAIN IN EXTREMITY [None]
  - PRODUCT QUALITY ISSUE [None]
